FAERS Safety Report 19366958 (Version 2)
Quarter: 2021Q2

REPORT INFORMATION
  Report Type: Report from Study
  Country: KR (occurrence: KR)
  Receive Date: 20210603
  Receipt Date: 20210605
  Transmission Date: 20210717
  Serious: Yes (Other)
  Sender: FDA-Public Use
  Company Number: KR-AMGEN-KORCT2021084152

PATIENT
  Age: 56 Year
  Sex: Male

DRUGS (45)
  1. DECITABINE. [Concomitant]
     Active Substance: DECITABINE
     Dosage: 20 UNK, QD
     Dates: start: 20110429, end: 20110429
  2. ACICLOVIR [Concomitant]
     Active Substance: ACYCLOVIR
     Dosage: 400 MG
     Dates: start: 20110620, end: 20110719
  3. FLUCONAZOLE. [Concomitant]
     Active Substance: FLUCONAZOLE
     Indication: PRODUCT USED FOR UNKNOWN INDICATION
     Dosage: 5 UNK
     Dates: start: 20110418, end: 20110424
  4. FLUCONAZOLE. [Concomitant]
     Active Substance: FLUCONAZOLE
     Dosage: 5 UNK
     Dates: start: 20110523, end: 20110620
  5. ITRACONAZOLE. [Concomitant]
     Active Substance: ITRACONAZOLE
     Dosage: 40 UNK
     Dates: start: 20110331, end: 20110417
  6. DECITABINE. [Concomitant]
     Active Substance: DECITABINE
     Dosage: 20 UNK, QD
     Dates: start: 20110427, end: 20110427
  7. DECITABINE. [Concomitant]
     Active Substance: DECITABINE
     Dosage: 20 UNK, QD
     Dates: start: 20110523, end: 20110523
  8. DECITABINE. [Concomitant]
     Active Substance: DECITABINE
     Dosage: 20 UNK, QD
     Dates: start: 20110622, end: 20110622
  9. DECITABINE. [Concomitant]
     Active Substance: DECITABINE
     Dosage: 20 UNK, QD
     Dates: start: 20110623, end: 20110623
  10. DECITABINE. [Concomitant]
     Active Substance: DECITABINE
     Dosage: 20 UNK, QD
     Dates: start: 20110624, end: 20110624
  11. FLUCONAZOLE. [Concomitant]
     Active Substance: FLUCONAZOLE
     Dosage: 5 UNK
     Dates: start: 20110620, end: 20110719
  12. TRIMEBUTINE [Concomitant]
     Active Substance: TRIMEBUTINE
     Indication: PRODUCT USED FOR UNKNOWN INDICATION
     Dosage: 300 MG
     Dates: start: 20110331, end: 20110417
  13. DECITABINE. [Concomitant]
     Active Substance: DECITABINE
     Dosage: 20 UNK, QD
     Dates: start: 20110323, end: 20110323
  14. DECITABINE. [Concomitant]
     Active Substance: DECITABINE
     Dosage: 20 UNK, QD
     Dates: start: 20110524, end: 20110524
  15. DECITABINE. [Concomitant]
     Active Substance: DECITABINE
     Dosage: 20 UNK, QD
     Dates: start: 20110620, end: 20110620
  16. ACICLOVIR [Concomitant]
     Active Substance: ACYCLOVIR
     Dosage: 400 MG
     Dates: start: 20110425, end: 20110523
  17. DECITABINE. [Concomitant]
     Active Substance: DECITABINE
     Dosage: 20 UNK, QD
     Dates: start: 20110324, end: 20110324
  18. DECITABINE. [Concomitant]
     Active Substance: DECITABINE
     Dosage: 20 UNK, QD
     Dates: start: 20110428, end: 20110428
  19. CIPROFLOXACIN. [Concomitant]
     Active Substance: CIPROFLOXACIN
     Dosage: 1000 MG
     Dates: start: 20110425, end: 20110523
  20. CIPROFLOXACIN. [Concomitant]
     Active Substance: CIPROFLOXACIN
     Dosage: 1000 MG
     Dates: start: 20110620, end: 20110719
  21. ITRACONAZOLE. [Concomitant]
     Active Substance: ITRACONAZOLE
     Indication: PRODUCT USED FOR UNKNOWN INDICATION
     Dosage: 40 UNK
     Dates: start: 20110321, end: 20110328
  22. FILGRASTIM [Suspect]
     Active Substance: FILGRASTIM
     Indication: PRODUCT USED FOR UNKNOWN INDICATION
     Dosage: 0.7 UNK
     Route: 065
     Dates: start: 20110331, end: 20110331
  23. FILGRASTIM [Suspect]
     Active Substance: FILGRASTIM
     Dosage: 0.7 UNK
     Route: 065
     Dates: start: 20110407, end: 20110407
  24. FILGRASTIM [Suspect]
     Active Substance: FILGRASTIM
     Dosage: 0.7 UNK
     Route: 065
     Dates: start: 20110516, end: 20110516
  25. FILGRASTIM [Suspect]
     Active Substance: FILGRASTIM
     Dosage: 0.7 UNK
     Route: 065
     Dates: start: 20110613, end: 20110613
  26. DECITABINE. [Concomitant]
     Active Substance: DECITABINE
     Dosage: 20 UNK, QD
     Dates: start: 20110525, end: 20110525
  27. ACICLOVIR [Concomitant]
     Active Substance: ACYCLOVIR
     Dosage: 400 MG
     Dates: start: 20110523, end: 20110620
  28. CIPROFLOXACIN. [Concomitant]
     Active Substance: CIPROFLOXACIN
     Indication: PRODUCT USED FOR UNKNOWN INDICATION
     Dosage: 1000 MG
     Dates: start: 20110321, end: 20110328
  29. DECITABINE. [Concomitant]
     Active Substance: DECITABINE
     Dosage: 20 UNK, QD
     Dates: start: 20110322, end: 20110322
  30. ACICLOVIR [Concomitant]
     Active Substance: ACYCLOVIR
     Indication: PRODUCT USED FOR UNKNOWN INDICATION
     Dosage: 400 MG
     Dates: start: 20110321, end: 20110328
  31. CIPROFLOXACIN. [Concomitant]
     Active Substance: CIPROFLOXACIN
     Dosage: 1000 MG
     Dates: start: 20110331, end: 20110417
  32. CIPROFLOXACIN. [Concomitant]
     Active Substance: CIPROFLOXACIN
     Dosage: 1000 MG
     Dates: start: 20110523, end: 20110620
  33. MAGNESIUM OXIDE. [Concomitant]
     Active Substance: MAGNESIUM OXIDE
     Indication: PRODUCT USED FOR UNKNOWN INDICATION
     Dosage: 1000 MG
     Dates: start: 20110705, end: 20110719
  34. FILGRASTIM [Suspect]
     Active Substance: FILGRASTIM
     Dosage: 0.7 UNK
     Route: 065
     Dates: start: 20110607, end: 20110607
  35. DECITABINE. [Concomitant]
     Active Substance: DECITABINE
     Indication: PRODUCT USED FOR UNKNOWN INDICATION
     Dosage: 20 UNK, QD
     Dates: start: 20110321, end: 20110321
  36. DECITABINE. [Concomitant]
     Active Substance: DECITABINE
     Dosage: 20 UNK, QD
     Dates: start: 20110325, end: 20110325
  37. DECITABINE. [Concomitant]
     Active Substance: DECITABINE
     Dosage: 20 UNK, QD
     Dates: start: 20110426, end: 20110426
  38. DECITABINE. [Concomitant]
     Active Substance: DECITABINE
     Dosage: 20 UNK, QD
     Dates: start: 20110621, end: 20110621
  39. DIOSMECTITE [Concomitant]
     Active Substance: MONTMORILLONITE
     Indication: PRODUCT USED FOR UNKNOWN INDICATION
     Dosage: 60 UNK
     Dates: start: 20110324, end: 20110328
  40. FILGRASTIM [Suspect]
     Active Substance: FILGRASTIM
     Dosage: 300 UNK
     Route: 065
     Dates: start: 20110705, end: 20110705
  41. DECITABINE. [Concomitant]
     Active Substance: DECITABINE
     Dosage: 20 UNK, QD
     Dates: start: 20110425, end: 20110425
  42. DECITABINE. [Concomitant]
     Active Substance: DECITABINE
     Dosage: 20 UNK, QD
     Dates: start: 20110526, end: 20110526
  43. DECITABINE. [Concomitant]
     Active Substance: DECITABINE
     Dosage: 20 UNK, QD
     Dates: start: 20110527, end: 20110527
  44. ACICLOVIR [Concomitant]
     Active Substance: ACYCLOVIR
     Dosage: 400 MG
     Dates: start: 20110331, end: 20110417
  45. FLUCONAZOLE. [Concomitant]
     Active Substance: FLUCONAZOLE
     Dosage: 5 UNK
     Dates: start: 20110425, end: 20110523

REACTIONS (8)
  - Face oedema [Not Recovered/Not Resolved]
  - Diarrhoea [Recovered/Resolved]
  - Neutropenia [Recovered/Resolved]
  - Dyspepsia [Not Recovered/Not Resolved]
  - White blood cell count decreased [Recovered/Resolved]
  - Thrombocytopenia [Recovered/Resolved]
  - Dry mouth [Not Recovered/Not Resolved]
  - Anaemia [Not Recovered/Not Resolved]

NARRATIVE: CASE EVENT DATE: 20110321
